FAERS Safety Report 23253758 (Version 1)
Quarter: 2023Q4

REPORT INFORMATION
  Report Type: Spontaneous
  Country: US (occurrence: US)
  Receive Date: 20231202
  Receipt Date: 20231202
  Transmission Date: 20240110
  Serious: No
  Sender: FDA-Public Use
  Company Number: US-OTTER-US-2022AST001979

PATIENT
  Sex: Female

DRUGS (2)
  1. OTREXUP [Suspect]
     Active Substance: METHOTREXATE
     Indication: Multiple sclerosis
     Dosage: 20 MG, WEEKLY
     Route: 058
     Dates: start: 202203
  2. OTREXUP [Suspect]
     Active Substance: METHOTREXATE
     Indication: Osteoporosis

REACTIONS (2)
  - Drug ineffective [Unknown]
  - Product use in unapproved indication [Unknown]

NARRATIVE: CASE EVENT DATE: 20220101
